FAERS Safety Report 23531309 (Version 1)
Quarter: 2024Q1

REPORT INFORMATION
  Report Type: Spontaneous
  Country: US (occurrence: US)
  Receive Date: 20240216
  Receipt Date: 20240216
  Transmission Date: 20240410
  Serious: No
  Sender: FDA-Public Use
  Company Number: US-CLOVIS ONCOLOGY-CLO-2023-000005

PATIENT
  Age: 64 Year
  Sex: Female
  Weight: 63.492 kg

DRUGS (1)
  1. RUBRACA [Suspect]
     Active Substance: RUCAPARIB CAMSYLATE
     Indication: Ovarian cancer
     Dosage: 200 MILLIGRAM, BID
     Dates: start: 202004, end: 20221224

REACTIONS (4)
  - Blood glucose decreased [Unknown]
  - Brain fog [Unknown]
  - Nausea [Unknown]
  - Decreased appetite [Unknown]

NARRATIVE: CASE EVENT DATE: 20221201
